FAERS Safety Report 5138374-9 (Version None)
Quarter: 2006Q4

REPORT INFORMATION
  Report Type: 
  Country: None (occurrence: None)
  Receive Date: 20061024
  Receipt Date: 20061010
  Transmission Date: 20070319
  Serious: Yes (Other)
  Sender: FDA-Public Use
  Company Number: 2006111795

PATIENT
  Age: 37 Year
  Sex: Female
  Weight: 50.8029 kg

DRUGS (5)
  1. BEN-GAY ULTRA (MENTHOL, CAMPHOR, METHYL SALICYLATE) [Suspect]
     Indication: ARTHRALGIA
     Dosage: 1-2 TSP CREAM RUBBED ONTO SKIN, 2X DAILY, TOPICAL
     Route: 061
     Dates: start: 20060501, end: 20060701
  2. MULTI-VITAMINS [Concomitant]
  3. ASCORBIC ACID [Concomitant]
  4. PHYTONADIONE [Concomitant]
  5. ACETAMINOPHEN [Concomitant]

REACTIONS (2)
  - HAEMOPHILIA [None]
  - RASH [None]
